FAERS Safety Report 8711256 (Version 5)
Quarter: 2014Q2

REPORT INFORMATION
  Report Type: Report from Study
  Country: US (occurrence: US)
  Receive Date: 20120807
  Receipt Date: 20140422
  Transmission Date: 20141212
  Serious: Yes (Other)
  Sender: FDA-Public Use
  Company Number: PHEH2012US015166

PATIENT
  Age: 85 Year
  Sex: Female

DRUGS (7)
  1. DIOVAN HCT [Suspect]
  2. HYDROCHLOROTHIAZIDE,VALSARTAN [Suspect]
     Dosage: 1 DF (VALS 160 MG / HYDR 25 MG), QD
  3. ACEBUTOLOL [Concomitant]
     Dosage: 200 MG, UNK
  4. NEXIUM [Concomitant]
     Dosage: UNK UKN, UNK
  5. ASPIRIN [Concomitant]
     Dosage: UNK UKN, UNK
  6. ALBUTEROL [Concomitant]
     Dosage: UNK UKN, UNK
  7. ATIVAN [Concomitant]

REACTIONS (7)
  - Atrial fibrillation [Unknown]
  - Drug hypersensitivity [Unknown]
  - Pruritus [Unknown]
  - Urticaria [Unknown]
  - Blood pressure inadequately controlled [Unknown]
  - Liver function test abnormal [Recovered/Resolved]
  - Drug ineffective [Unknown]
